FAERS Safety Report 7290195-7 (Version None)
Quarter: 2011Q1

REPORT INFORMATION
  Report Type: 
  Country: None (occurrence: None)
  Receive Date: 20110214
  Receipt Date: 20110204
  Transmission Date: 20110831
  Serious: Yes (Other)
  Sender: FDA-Public Use
  Company Number: PHHY2009SE47937

PATIENT
  Sex: Female

DRUGS (9)
  1. TRACLEER [Concomitant]
     Dosage: 250 MG, UNK
  2. WARAN [Concomitant]
  3. PANOCOD [Concomitant]
  4. SPIRONOLAKTON [Concomitant]
  5. DUROFERON [Concomitant]
  6. ACLASTA [Suspect]
     Indication: OSTEOPOROSIS
     Dosage: 5 MG,
     Dates: start: 20091009
  7. PREDNISOLONE [Concomitant]
     Dosage: 7.5 MG, UNK
  8. FURIX [Concomitant]
     Dosage: 40 MG, UNK
  9. CALCICHEW D3 [Concomitant]

REACTIONS (9)
  - PAIN IN EXTREMITY [None]
  - OEDEMA PERIPHERAL [None]
  - OEDEMA [None]
  - GOUT [None]
  - INFLUENZA LIKE ILLNESS [None]
  - ARTHRITIS [None]
  - ARTHRALGIA [None]
  - MYALGIA [None]
  - STRESS FRACTURE [None]
